FAERS Safety Report 10175997 (Version 1)
Quarter: 2014Q2

REPORT INFORMATION
  Report Type: Spontaneous
  Country: US (occurrence: US)
  Receive Date: 20140516
  Receipt Date: 20140516
  Transmission Date: 20141212
  Serious: Yes (Hospitalization)
  Sender: FDA-Public Use
  Company Number: US-BAYER-2014-072007

PATIENT
  Age: 49 Year
  Sex: Female
  Weight: 76.19 kg

DRUGS (1)
  1. YASMIN [Suspect]
     Dosage: UNK
     Dates: end: 20060427

REACTIONS (2)
  - Pulmonary embolism [None]
  - Deep vein thrombosis [None]
